FAERS Safety Report 25203223 (Version 1)
Quarter: 2025Q2

REPORT INFORMATION
  Report Type: Report from Study
  Country: CA (occurrence: CA)
  Receive Date: 20250416
  Receipt Date: 20250416
  Transmission Date: 20250716
  Serious: Yes (Other)
  Sender: BIOCON
  Company Number: CA-MIMS-BCONMC-10012

PATIENT

DRUGS (1)
  1. HULIO [Suspect]
     Active Substance: ADALIMUMAB-FKJP
     Indication: Psoriatic arthropathy
     Dosage: 40MG PEN EVERY OTHER WEEK
     Route: 058
     Dates: start: 20241121

REACTIONS (12)
  - Compression fracture [Unknown]
  - Osteoporosis [Unknown]
  - Hypersensitivity [Recovering/Resolving]
  - Spinal osteoarthritis [Unknown]
  - Thyroid mass [Unknown]
  - Hyperhidrosis [Unknown]
  - Injection site bruising [Recovering/Resolving]
  - Injection site pain [Unknown]
  - Product use issue [Unknown]
  - Product dispensing issue [Unknown]
  - Wrong technique in product usage process [Unknown]
  - Circumstance or information capable of leading to medication error [Unknown]

NARRATIVE: CASE EVENT DATE: 20241219
